FAERS Safety Report 9439909 (Version 1)
Quarter: 2013Q3

REPORT INFORMATION
  Report Type: Spontaneous
  Country: US (occurrence: US)
  Receive Date: 20130805
  Receipt Date: 20130805
  Transmission Date: 20140515
  Serious: No
  Sender: FDA-Public Use
  Company Number: US-BAYER-2013-090552

PATIENT
  Sex: Female
  Weight: 86.17 kg

DRUGS (9)
  1. BETASERON [Suspect]
     Dosage: 0.3 MG, UNK
  2. LOSARTAN POTASSIUM [Concomitant]
  3. LEVOTHYROXINE SODIUM [Concomitant]
  4. DIMETHYL FUMARATE [Concomitant]
  5. NEURONTIN [Concomitant]
  6. CARDIZEM CD [Concomitant]
  7. TYLENOL [PARACETAMOL] [Concomitant]
  8. VICODIN [Concomitant]
  9. PREMARIN [Concomitant]

REACTIONS (1)
  - Drug ineffective [Unknown]
